FAERS Safety Report 7556655-6 (Version None)
Quarter: 2011Q2

REPORT INFORMATION
  Report Type: 
  Country: None (occurrence: None)
  Receive Date: 20110620
  Receipt Date: 20110613
  Transmission Date: 20111010
  Serious: Yes (Hospitalization, Other)
  Sender: FDA-Public Use
  Company Number: BR-BRISTOL-MYERS SQUIBB COMPANY-15060932

PATIENT
  Age: 73 Year
  Sex: Male
  Weight: 74 kg

DRUGS (7)
  1. PLACEBO [Suspect]
     Indication: THROMBOSIS PROPHYLAXIS
     Dosage: DRUG INTERRUPTED ON 10-APR-2010,RESTARTED ON 03MAY2010
     Route: 048
     Dates: start: 20091009
  2. SIMVASTATIN [Concomitant]
     Dates: start: 20090801
  3. WARFARIN SODIUM [Suspect]
     Indication: THROMBOSIS PROPHYLAXIS
     Dosage: DRUG INTERRUPTEDON 10-APR-2010,RESTARTED ON 03MAY2010
     Route: 048
     Dates: start: 20091009
  4. DOXAZOSIN MESYLATE [Concomitant]
     Dates: start: 20090801
  5. CARISOPRODOL [Concomitant]
     Dates: start: 20040101
  6. CARVEDILOL [Concomitant]
     Dates: start: 20090801
  7. APAP+CARISOPRODOL+DICLOFENAC+CAFFEINE [Concomitant]
     Dates: end: 20100410

REACTIONS (1)
  - THROMBOCYTOPENIA [None]
